FAERS Safety Report 23068816 (Version 1)
Quarter: 2023Q4

REPORT INFORMATION
  Report Type: Spontaneous
  Country: CA (occurrence: CA)
  Receive Date: 20231016
  Receipt Date: 20231016
  Transmission Date: 20240109
  Serious: Yes (Hospitalization)
  Sender: FDA-Public Use
  Company Number: CA-BoehringerIngelheim-2023-BI-266849

PATIENT
  Age: 88 Year
  Sex: Male
  Weight: 73 kg

DRUGS (7)
  1. JARDIANCE [Suspect]
     Active Substance: EMPAGLIFLOZIN
     Indication: Type 2 diabetes mellitus
     Route: 048
  2. NOVORAPID 3ML PENFILL CARTRIDGE [Concomitant]
     Indication: Product used for unknown indication
     Dosage: FORM: SOLUTION SUBCUTANEOUS
     Route: 058
  3. TEARS NATURALE II [Concomitant]
     Indication: Product used for unknown indication
     Route: 047
  4. INSULIN GLARGINE [Concomitant]
     Active Substance: INSULIN GLARGINE
     Indication: Product used for unknown indication
     Dosage: FORM: SOLUTION SUBCUTANEOUS
     Route: 058
  5. BUTRANS 5 [Concomitant]
     Indication: Product used for unknown indication
     Dosage: FORM: PATCH
  6. ROCEPHIN [Concomitant]
     Active Substance: CEFTRIAXONE SODIUM
     Indication: Product used for unknown indication
     Route: 030
  7. DILAUDID [Concomitant]
     Active Substance: HYDROMORPHONE HYDROCHLORIDE
     Indication: Product used for unknown indication
     Dosage: FORM: LIQUID
     Route: 030

REACTIONS (5)
  - Diabetic ketoacidosis [Recovering/Resolving]
  - Hypophagia [Recovering/Resolving]
  - Acute kidney injury [Recovering/Resolving]
  - Dysphagia [Recovering/Resolving]
  - Glucose urine present [Recovering/Resolving]
